FAERS Safety Report 9784075 (Version 4)
Quarter: 2014Q1

REPORT INFORMATION
  Report Type: Spontaneous
  Country: IT (occurrence: IT)
  Receive Date: 20131226
  Receipt Date: 20140213
  Transmission Date: 20141002
  Serious: Yes (Other)
  Sender: FDA-Public Use
  Company Number: PHHY2013IT149432

PATIENT
  Sex: Male

DRUGS (9)
  1. ATORVASTATIN [Suspect]
     Dosage: 20 MG, QD
     Route: 048
     Dates: end: 20131205
  2. CARDIOASPIRIN [Concomitant]
  3. FOLINA [Concomitant]
  4. OLANZAPINE [Concomitant]
  5. ALFUZOSIN [Concomitant]
  6. MONTELUKAST [Concomitant]
  7. GABAPENTIN [Concomitant]
  8. POTASSIUM CANRENOATE [Concomitant]
  9. MELATONIN [Concomitant]

REACTIONS (2)
  - Fall [Recovered/Resolved]
  - Rhabdomyolysis [Recovered/Resolved]
